FAERS Safety Report 20647256 (Version 3)
Quarter: 2022Q2

REPORT INFORMATION
  Report Type: Other
  Country: JP (occurrence: JP)
  Receive Date: 20220329
  Receipt Date: 20220503
  Transmission Date: 20220721
  Serious: Yes (Other)
  Sender: FDA-Public Use
  Company Number: JP-CHUGAI-2022010206

PATIENT
  Age: 83 Year
  Sex: Male

DRUGS (2)
  1. ATEZOLIZUMAB [Suspect]
     Active Substance: ATEZOLIZUMAB
     Indication: Hepatocellular carcinoma
     Dosage: UNK
     Route: 041
     Dates: start: 20210729, end: 20210916
  2. BEVACIZUMAB [Suspect]
     Active Substance: BEVACIZUMAB
     Indication: Hepatocellular carcinoma
     Dosage: UNK
     Route: 041
     Dates: start: 20210729, end: 20210916

REACTIONS (4)
  - Anaemia [Unknown]
  - Hepatic function abnormal [Recovered/Resolved]
  - Oedema peripheral [Unknown]
  - Hypertension [Unknown]

NARRATIVE: CASE EVENT DATE: 20210819
